FAERS Safety Report 4925904-2 (Version None)
Quarter: 2006Q1

REPORT INFORMATION
  Report Type: 
  Country: None (occurrence: None)
  Receive Date: 20060228
  Receipt Date: 20050412
  Transmission Date: 20060701
  Serious: Yes (Other)
  Sender: FDA-Public Use
  Company Number: US-GLAXOSMITHKLINE-A0553804A

PATIENT
  Sex: Male

DRUGS (8)
  1. LAMICTAL [Suspect]
     Indication: BIPOLAR DISORDER
     Dosage: 300MG UNKNOWN
     Route: 048
     Dates: start: 20040301
  2. TOPAMAX [Concomitant]
  3. VALIUM [Concomitant]
  4. TRAZODONE [Concomitant]
  5. DOXYCYCLINE [Concomitant]
  6. ORELOX [Concomitant]
  7. CORDRAN [Concomitant]
  8. HERBAL MEDICINE [Concomitant]

REACTIONS (1)
  - HEPATIC ENZYME INCREASED [None]
